FAERS Safety Report 10998155 (Version 2)
Quarter: 2015Q2

REPORT INFORMATION
  Report Type: Spontaneous
  Country: BE (occurrence: None)
  Receive Date: 20150406
  Receipt Date: 20150413
  Transmission Date: 20150821
  Serious: Yes (Hospitalization)
  Sender: FDA-Public Use
  Company Number: 2015SGN00264

PATIENT
  Age: 27 Year
  Sex: Female
  Weight: 80 kg

DRUGS (14)
  1. EUSAPRIM /00086101/  (SULFAMETHOXAZOLE, TRIMETHOPRIM) [Concomitant]
  2. PANTOMED (PANTOPRAZOLE SODIUM SESQUIHYDRATE) [Concomitant]
  3. TEMESTA EXPIDET (LORAZEPAM) [Concomitant]
  4. EMCONCOR MINOR (BISOPROLOL FUMARATE) [Concomitant]
  5. FRAXODI (NADROPARIN CALCIUM) [Concomitant]
  6. ADCETRIS [Suspect]
     Active Substance: BRENTUXIMAB VEDOTIN
     Indication: PRODUCT USED FOR UNKNOWN INDICATION
  7. MEDROL /00049601/ (METHYLPREDNISOLONE) [Concomitant]
  8. MOVICOL BAGS (MACROGOL, POTASSIUM CHLORIDE, SODIUM BICARBONATE) [Concomitant]
  9. CETIRIZINE [Concomitant]
     Active Substance: CETIRIZINE HYDROCHLORIDE
  10. ZOLADEX [Concomitant]
     Active Substance: GOSERELIN ACETATE
  11. ADCETRIS [Suspect]
     Active Substance: BRENTUXIMAB VEDOTIN
     Indication: HODGKIN^S DISEASE REFRACTORY
  12. ZOVIRAX /00587301/ (ACICLOVIR) [Concomitant]
  13. DIFLUCAN [Concomitant]
     Active Substance: FLUCONAZOLE
  14. ISOBETADINE (POVIDONE-IODINE) [Concomitant]

REACTIONS (7)
  - Pneumocystis jirovecii infection [None]
  - Tachycardia [None]
  - Pulmonary embolism [None]
  - Stem cell transplant [None]
  - Lymphoproliferative disorder [None]
  - Chest pain [None]
  - Pyrexia [None]

NARRATIVE: CASE EVENT DATE: 20141105
